FAERS Safety Report 10326992 (Version 2)
Quarter: 2015Q1

REPORT INFORMATION
  Report Type: Other
  Country: US (occurrence: US)
  Receive Date: 20140720
  Receipt Date: 20150224
  Transmission Date: 20150720
  Serious: Yes (Death, Hospitalization, Other)
  Sender: FDA-Public Use
  Company Number: US-GSKPPD-2014GSK040868

PATIENT
  Age: 72 Year
  Sex: Female

DRUGS (8)
  1. CAPTOPRIL. [Concomitant]
     Active Substance: CAPTOPRIL
  2. LASIX [Concomitant]
     Active Substance: FUROSEMIDE
     Route: 048
  3. CARDIZEM [Concomitant]
     Active Substance: DILTIAZEM HYDROCHLORIDE
  4. HYDRALAZINE [Concomitant]
     Active Substance: HYDRALAZINE HYDROCHLORIDE
  5. CLONIDINE. [Concomitant]
     Active Substance: CLONIDINE
     Route: 062
  6. METOPROLOL [Concomitant]
     Active Substance: METOPROLOL
  7. AVANDIA [Suspect]
     Active Substance: ROSIGLITAZONE MALEATE
     Indication: DIABETES MELLITUS
     Dosage: DATES OF AVANDIA USE COULD NOT BE CONFIRMED IN RECORDS REVIEWED
     Route: 048
  8. ASA [Concomitant]
     Active Substance: ASPIRIN

REACTIONS (2)
  - Hypertension [Fatal]
  - Cardiac failure congestive [Recovered/Resolved]

NARRATIVE: CASE EVENT DATE: 20070119
